FAERS Safety Report 6375727-5 (Version None)
Quarter: 2009Q3

REPORT INFORMATION
  Report Type: 
  Country: None (occurrence: None)
  Receive Date: 20090924
  Receipt Date: 20090818
  Transmission Date: 20100115
  Serious: No
  Sender: FDA-Public Use
  Company Number: A0802822A

PATIENT
  Sex: Female

DRUGS (5)
  1. LAMICTAL [Suspect]
     Route: 048
     Dates: start: 20090805, end: 20090816
  2. KLONOPIN [Concomitant]
  3. TYLENOL (CAPLET) [Concomitant]
  4. FLUTICASONE PROPIONATE [Concomitant]
     Route: 045
  5. CAFFEINE CITRATE [Concomitant]

REACTIONS (6)
  - ABASIA [None]
  - AGITATION [None]
  - ARTHRALGIA [None]
  - ASTHENIA [None]
  - DRUG INEFFECTIVE [None]
  - TREMOR [None]
